APPROVED DRUG PRODUCT: NICOTINE POLACRILEX
Active Ingredient: NICOTINE POLACRILEX
Strength: EQ 2MG BASE
Dosage Form/Route: TROCHE/LOZENGE;ORAL
Application: A208875 | Product #001
Applicant: P AND L DEVELOPMENT LLC
Approved: Oct 31, 2019 | RLD: No | RS: No | Type: OTC